FAERS Safety Report 9722683 (Version 2)
Quarter: 2014Q1

REPORT INFORMATION
  Report Type: Spontaneous
  Country: US (occurrence: US)
  Receive Date: 20131202
  Receipt Date: 20140108
  Transmission Date: 20141002
  Serious: No
  Sender: FDA-Public Use
  Company Number: US-009507513-1311USA011828

PATIENT
  Sex: Male

DRUGS (1)
  1. SAPHRIS [Suspect]
     Indication: MOOD SWINGS
     Dosage: 1 DF, BID
     Route: 048
     Dates: start: 20130821

REACTIONS (5)
  - Drug dose omission [Unknown]
  - Product quality issue [Unknown]
  - Incorrect route of drug administration [Unknown]
  - No adverse event [Unknown]
  - Product packaging issue [Unknown]
